FAERS Safety Report 10034455 (Version 1)
Quarter: 2014Q1

REPORT INFORMATION
  Report Type: Spontaneous
  Country: US (occurrence: None)
  Receive Date: 20140324
  Receipt Date: 20140324
  Transmission Date: 20141002
  Serious: Yes (Other)
  Sender: FDA-Public Use
  Company Number: None

PATIENT
  Age: 58 Year
  Sex: Female
  Weight: 81.65 kg

DRUGS (2)
  1. CLONAZEPAM [Suspect]
     Indication: SOCIAL PHOBIA
     Dosage: 1 BID ORAL?
     Route: 048
  2. CLONAZEPAM [Suspect]
     Indication: PANIC ATTACK
     Dosage: 1 BID ORAL?
     Route: 048

REACTIONS (2)
  - Headache [None]
  - Chest pain [None]
